FAERS Safety Report 9094124 (Version 1)
Quarter: 2013Q1

REPORT INFORMATION
  Report Type: Spontaneous
  Country: US (occurrence: None)
  Receive Date: 20130122
  Receipt Date: 20130122
  Transmission Date: 20140127
  Serious: Yes (Other)
  Sender: FDA-Public Use
  Company Number: 2013SA000862

PATIENT
  Age: 66 Year
  Sex: Female

DRUGS (1)
  1. ICY HOT NO MESS [Suspect]
     Route: 061
     Dates: start: 2002, end: 2012

REACTIONS (4)
  - Thermal burn [None]
  - Scar [None]
  - Pain [None]
  - Discomfort [None]
